FAERS Safety Report 20691601 (Version 3)
Quarter: 2023Q1

REPORT INFORMATION
  Report Type: Report from Study
  Country: US (occurrence: None)
  Receive Date: 20220408
  Receipt Date: 20230227
  Transmission Date: 20230418
  Serious: Yes (Death, Life-Threatening, Hospitalization)
  Sender: FDA-Public Use
  Company Number: US-ROCHE-3066819

PATIENT
  Age: 43 Year
  Sex: Female
  Weight: 90 kg

DRUGS (4)
  1. ATEZOLIZUMAB [Suspect]
     Active Substance: ATEZOLIZUMAB
     Indication: Invasive breast carcinoma
     Dosage: OVER 30-60 MINUTES ON DAY 22 OF CYCLE 1 AND DAYS 1 AND 22 OF SUBSEQUENT CYCLES
     Route: 041
     Dates: start: 20220210
  2. PERTUZUMAB [Suspect]
     Active Substance: PERTUZUMAB
     Indication: Invasive breast carcinoma
     Dosage: LOADING DOSE OF 840 MG FOLLOWED BY MAINTENANCE DOSE OF 420 MG?10/FEB/2022:LAST DOSE OF PERTUZUMAB AD
     Route: 042
     Dates: start: 20220120
  3. TRASTUZUMAB [Suspect]
     Active Substance: TRASTUZUMAB
     Indication: Invasive breast carcinoma
     Dosage: LOADING DOSE FOLLOWED BY MAINTENANCE DOSE OF 6 MG/KG?10/FEB/2022:LAST DOSE OF TRASTUZUMAB ADMINISTER
     Route: 041
     Dates: start: 20220120
  4. TAXOTERE [Suspect]
     Active Substance: DOCETAXEL
     Indication: Invasive breast carcinoma
     Dosage: 10/FEB/2022: LAST DOSE OF DOCETAXEL ADMINISTERED
     Route: 042
     Dates: start: 20220120

REACTIONS (4)
  - Sepsis [Fatal]
  - Myocardial infarction [Recovered/Resolved]
  - Acute kidney injury [Recovered/Resolved]
  - Pulmonary embolism [Recovered/Resolved]

NARRATIVE: CASE EVENT DATE: 20220224
